FAERS Safety Report 9415079 (Version 2)
Quarter: 2013Q3

REPORT INFORMATION
  Report Type: Report from Study
  Country: AR (occurrence: AR)
  Receive Date: 20130723
  Receipt Date: 20130731
  Transmission Date: 20140515
  Serious: Yes (Other)
  Sender: FDA-Public Use
  Company Number: PHHY2013AR078171

PATIENT
  Sex: Male

DRUGS (2)
  1. DIOVAN [Suspect]
     Indication: HYPERTENSION
     Dosage: 1 DF, (160 MG) A DAY
     Route: 048
  2. DIOVAN [Suspect]
     Dosage: 1.5 DF, (160 MG)
     Route: 048

REACTIONS (3)
  - Nephrolithiasis [Unknown]
  - Blood pressure systolic increased [Recovered/Resolved]
  - Wrong technique in drug usage process [Unknown]
